FAERS Safety Report 6822027-2 (Version None)
Quarter: 2010Q3

REPORT INFORMATION
  Report Type: 
  Country: None (occurrence: None)
  Receive Date: 20100708
  Receipt Date: 20100628
  Transmission Date: 20110219
  Serious: Yes (Hospitalization)
  Sender: FDA-Public Use
  Company Number: GB-BAXTER-2010BH017137

PATIENT
  Sex: Male

DRUGS (2)
  1. TISSEEL VH KIT [Suspect]
     Indication: EYE OPERATION
     Route: 031
     Dates: start: 20100625, end: 20100625
  2. TISSEEL VH KIT [Suspect]
     Indication: OFF LABEL USE
     Route: 031
     Dates: start: 20100625, end: 20100625

REACTIONS (4)
  - COLOUR BLINDNESS ACQUIRED [None]
  - DIPLOPIA [None]
  - OFF LABEL USE [None]
  - VISUAL ACUITY REDUCED [None]
